FAERS Safety Report 5662061-1 (Version None)
Quarter: 2008Q1

REPORT INFORMATION
  Report Type: 
  Country: None (occurrence: None)
  Receive Date: 20080208
  Receipt Date: 20071112
  Transmission Date: 20080703
  Serious: Yes (Other)
  Sender: FDA-Public Use
  Company Number: PROG00207034947

PATIENT
  Age: 64 Year
  Sex: Female

DRUGS (10)
  1. PROMETRIUM [Suspect]
     Indication: HORMONE REPLACEMENT THERAPY
  2. PROMETRIUM [Suspect]
     Indication: MENOPAUSAL SYMPTOMS
  3. ESTRATAB [Suspect]
     Indication: HORMONE REPLACEMENT THERAPY
  4. ESTRATAB [Suspect]
     Indication: MENOPAUSAL SYMPTOMS
  5. PREMARIN [Suspect]
     Indication: HORMONE REPLACEMENT THERAPY
  6. PREMARIN [Suspect]
     Indication: MENOPAUSAL SYMPTOMS
  7. PROVERA [Suspect]
     Indication: HORMONE REPLACEMENT THERAPY
  8. PROVERA [Suspect]
     Indication: MENOPAUSAL SYMPTOMS
  9. PREMPRO [Suspect]
     Indication: HORMONE REPLACEMENT THERAPY
  10. PREMPRO [Suspect]
     Indication: MENOPAUSAL SYMPTOMS

REACTIONS (1)
  - BREAST CANCER [None]
